FAERS Safety Report 19932474 (Version 1)
Quarter: 2021Q4

REPORT INFORMATION
  Report Type: Spontaneous
  Country: US (occurrence: US)
  Receive Date: 20211005
  Receipt Date: 20211005
  Transmission Date: 20220303
  Serious: No
  Sender: FDA-Public Use
  Company Number: None

PATIENT

DRUGS (1)
  1. TREPROSTINIL SODIUM [Suspect]
     Active Substance: TREPROSTINIL SODIUM

REACTIONS (5)
  - Wrong technique in device usage process [None]
  - Product dose omission in error [None]
  - Mental status changes [None]
  - Hypertension [None]
  - Product administration interrupted [None]
